FAERS Safety Report 8073955-4 (Version None)
Quarter: 2011Q4

REPORT INFORMATION
  Report Type: 
  Country: None (occurrence: None)
  Receive Date: 20111221
  Receipt Date: 20110803
  Transmission Date: 20120403
  Serious: Yes (Other)
  Sender: FDA-Public Use
  Company Number: PHHY2011US19331

PATIENT
  Age: 73 Year
  Sex: Male
  Weight: 114.7 kg

DRUGS (4)
  1. EXJADE [Suspect]
     Indication: ANAEMIA
     Dosage: 2000 MG, ADILY, ORAL
     Route: 048
     Dates: start: 20101001
  2. EXJADE [Suspect]
     Indication: BLOOD COUNT ABNORMAL
     Dosage: 2000 MG, ADILY, ORAL
     Route: 048
     Dates: start: 20101001
  3. EXJADE [Suspect]
     Indication: ANAEMIA
     Dosage: 2000 MG, ADILY, ORAL
     Route: 048
     Dates: end: 20110712
  4. EXJADE [Suspect]
     Indication: BLOOD COUNT ABNORMAL
     Dosage: 2000 MG, ADILY, ORAL
     Route: 048
     Dates: end: 20110712

REACTIONS (4)
  - GALLBLADDER DISORDER [None]
  - PAIN [None]
  - CHOLELITHIASIS [None]
  - VOMITING [None]
